FAERS Safety Report 25472975 (Version 1)
Quarter: 2025Q2

REPORT INFORMATION
  Report Type: Spontaneous
  Country: RU (occurrence: RU)
  Receive Date: 20250624
  Receipt Date: 20250624
  Transmission Date: 20250717
  Serious: Yes (Other)
  Sender: SUNOVION
  Company Number: RU-CNX THERAPEUTICS-2025CNX000394

PATIENT

DRUGS (3)
  1. LATUDA [Suspect]
     Active Substance: LURASIDONE HYDROCHLORIDE
     Indication: Bipolar disorder
     Route: 048
     Dates: start: 20250408, end: 20250414
  2. Quetiapine canon prolong [Concomitant]
     Indication: Bipolar disorder
     Route: 048
     Dates: start: 20250323, end: 20250408
  3. Encorate chrono [Concomitant]
     Indication: Bipolar disorder
     Route: 048
     Dates: start: 20250323, end: 20250408

REACTIONS (5)
  - Affective disorder [Recovering/Resolving]
  - Tearfulness [Recovering/Resolving]
  - Blood pressure increased [Recovering/Resolving]
  - Sleep disorder [Recovering/Resolving]
  - Off label use [Recovering/Resolving]

NARRATIVE: CASE EVENT DATE: 20250410
